FAERS Safety Report 10086631 (Version 1)
Quarter: 2014Q2

REPORT INFORMATION
  Report Type: Spontaneous
  Country: IT (occurrence: IT)
  Receive Date: 20140418
  Receipt Date: 20140418
  Transmission Date: 20141212
  Serious: Yes (Other)
  Sender: FDA-Public Use
  Company Number: IT-PFIZER INC-2014108639

PATIENT
  Age: 56 Year
  Sex: Male
  Weight: 60 kg

DRUGS (5)
  1. DEPO-MEDROL [Suspect]
     Indication: TENDON DISORDER
     Dosage: 1 DF, UNK
     Route: 014
     Dates: start: 20140206, end: 20140206
  2. DEPO-MEDROL [Suspect]
     Dosage: 1 DF, UNK
     Route: 014
     Dates: start: 20140217, end: 20140217
  3. DEPO-MEDROL [Suspect]
     Dosage: 1 DF, UNK
     Route: 014
     Dates: start: 20140228, end: 20140228
  4. TORVAST [Suspect]
     Indication: DYSLIPIDAEMIA
     Dosage: UNK
     Route: 048
     Dates: start: 20050526
  5. MOMENT 200 [Suspect]
     Indication: PAIN
     Dosage: UNK
     Route: 048
     Dates: start: 20140206, end: 20140228

REACTIONS (2)
  - Pancreatitis acute [Recovered/Resolved]
  - Pancreatic enzymes increased [Recovered/Resolved]
